FAERS Safety Report 25014905 (Version 1)
Quarter: 2025Q1

REPORT INFORMATION
  Report Type: Spontaneous
  Country: SE (occurrence: SE)
  Receive Date: 20250226
  Receipt Date: 20250226
  Transmission Date: 20250409
  Serious: Yes (Other)
  Sender: INSUD PHARMA
  Company Number: SE-EXELTIS PHARMACEUTICAL HOLDING, S.L.-2502SE01176

PATIENT
  Sex: Female

DRUGS (1)
  1. DROSPIRENONE [Suspect]
     Active Substance: DROSPIRENONE
     Indication: Dysmenorrhoea
     Dates: end: 20241005

REACTIONS (7)
  - Suicidal ideation [Unknown]
  - Mental disorder [Unknown]
  - Dysmenorrhoea [Unknown]
  - Condition aggravated [Unknown]
  - Panic disorder [Unknown]
  - Anxiety [Unknown]
  - Product use in unapproved indication [Unknown]
